FAERS Safety Report 17881505 (Version 1)
Quarter: 2020Q2

REPORT INFORMATION
  Report Type: Spontaneous
  Country: US (occurrence: US)
  Receive Date: 20200610
  Receipt Date: 20200610
  Transmission Date: 20200714
  Serious: No
  Sender: FDA-Public Use
  Company Number: US-COLLEGIUM PHARMACEUTICAL, INC.-2019CGM00229

PATIENT
  Age: 20 Year
  Sex: Male

DRUGS (1)
  1. XTAMPZA ER [Suspect]
     Active Substance: OXYCODONE
     Indication: PAIN

REACTIONS (5)
  - Performance status decreased [Unknown]
  - Nausea [Unknown]
  - Weight decreased [Unknown]
  - Feeding disorder [Unknown]
  - Drug ineffective [Unknown]
